FAERS Safety Report 23581115 (Version 5)
Quarter: 2024Q2

REPORT INFORMATION
  Report Type: Spontaneous
  Country: US (occurrence: US)
  Receive Date: 20240229
  Receipt Date: 20240620
  Transmission Date: 20240716
  Serious: Yes (Other)
  Sender: FDA-Public Use
  Company Number: US-PFIZER INC-PV202400027729

PATIENT
  Age: 86 Year
  Sex: Female
  Weight: 55.8 kg

DRUGS (4)
  1. IBRANCE [Suspect]
     Active Substance: PALBOCICLIB
     Indication: Breast cancer female
     Dosage: TAKE 1 TAB ONCE DAILY FOR 3 WEEKS ON AND 1 WEEK OFF
     Route: 048
  2. IBRANCE [Suspect]
     Active Substance: PALBOCICLIB
     Dosage: TAKE 1 TAB (75 MG TOTAL) BY MOUTH DAILY FOR 21 DAYS AND THEN REST FOR 7 DAYS
     Route: 048
     Dates: start: 20240221
  3. FULVESTRANT [Concomitant]
     Active Substance: FULVESTRANT
     Indication: Breast cancer female
     Dosage: UNK
     Dates: start: 20240221
  4. XGEVA [Concomitant]
     Active Substance: DENOSUMAB
     Indication: Metastases to bone
     Dosage: UNK
     Dates: start: 20231116

REACTIONS (2)
  - Neutropenia [Recovered/Resolved]
  - Illness [Recovered/Resolved]

NARRATIVE: CASE EVENT DATE: 20240425
